FAERS Safety Report 6247237-7 (Version None)
Quarter: 2009Q2

REPORT INFORMATION
  Report Type: 
  Country: None (occurrence: None)
  Receive Date: 20090624
  Receipt Date: 20090624
  Transmission Date: 20091009
  Serious: No
  Sender: FDA-Public Use
  Company Number: None

PATIENT
  Age: 74 Year
  Sex: Female
  Weight: 92.5 kg

DRUGS (13)
  1. ENOXAPARIN SODIUM [Suspect]
     Indication: THROMBOSIS PROPHYLAXIS
     Dosage: 40MG SQ QD
     Route: 058
     Dates: start: 20090408, end: 20090413
  2. AMITRIPTYLINE HCL [Concomitant]
  3. ASPIRIN [Concomitant]
  4. CARVEDILOL [Concomitant]
  5. CLOPIDOGREL [Concomitant]
  6. DOXYCYCLINE [Concomitant]
  7. CEFADROXIL [Concomitant]
  8. INSULIN [Concomitant]
  9. LASIX [Concomitant]
  10. LISINOPRIL [Concomitant]
  11. PRAVASTATIN [Concomitant]
  12. SENNA [Concomitant]
  13. TEMAZEPAM [Concomitant]

REACTIONS (1)
  - PLATELET COUNT DECREASED [None]
